FAERS Safety Report 18220986 (Version 2)
Quarter: 2021Q2

REPORT INFORMATION
  Report Type: Spontaneous
  Country: US (occurrence: US)
  Receive Date: 20200902
  Receipt Date: 20210531
  Transmission Date: 20210717
  Serious: Yes (Other)
  Sender: FDA-Public Use
  Company Number: US-CIPLA LTD.-2020US06119

PATIENT

DRUGS (4)
  1. TOPIRAMATE. [Suspect]
     Active Substance: TOPIRAMATE
     Indication: MIGRAINE
     Dosage: 100 MILLIGRAM, QD (ONCE A DAY AT BED TIME)
     Route: 048
     Dates: start: 20191220
  2. TOPIRAMATE. [Suspect]
     Active Substance: TOPIRAMATE
     Dosage: 100 MILLIGRAM, QD (4 TABLETS OF 25 MG; ONCE A DAY AT BEDTIME)
     Route: 048
     Dates: start: 2020
  3. TIZANIDINE. [Concomitant]
     Active Substance: TIZANIDINE
     Indication: MIGRAINE
     Dosage: 25 MILLIGRAM, PRN (AS NEEDED)
     Route: 065
     Dates: start: 201912
  4. TIZANIDINE. [Concomitant]
     Active Substance: TIZANIDINE
     Indication: MUSCLE RELAXANT THERAPY

REACTIONS (11)
  - Mental impairment [Not Recovered/Not Resolved]
  - Feeling abnormal [Unknown]
  - Pyrexia [Unknown]
  - Speech disorder [Not Recovered/Not Resolved]
  - Hypersomnia [Not Recovered/Not Resolved]
  - Weight decreased [Unknown]
  - Nausea [Not Recovered/Not Resolved]
  - Abdominal pain [Unknown]
  - Diarrhoea [Unknown]
  - Taste disorder [Not Recovered/Not Resolved]
  - Fatigue [Unknown]

NARRATIVE: CASE EVENT DATE: 2020
